FAERS Safety Report 5117691-2 (Version None)
Quarter: 2006Q3

REPORT INFORMATION
  Report Type: 
  Country: None (occurrence: None)
  Receive Date: 20060929
  Receipt Date: 20060918
  Transmission Date: 20061208
  Serious: Yes (Other)
  Sender: FDA-Public Use
  Company Number: PHEH2006US11864

PATIENT
  Sex: Male

DRUGS (6)
  1. ZELNORM [Suspect]
     Indication: CONSTIPATION
     Dosage: 6 MG, BID
     Route: 048
     Dates: start: 20060901, end: 20060917
  2. AVANDIA [Concomitant]
  3. LOTREL [Concomitant]
     Indication: HYPERTENSION
     Dosage: 10/20
  4. AVAPRO [Concomitant]
     Indication: HYPERTENSION
  5. SYNTHROID [Concomitant]
     Indication: THYROID DISORDER
  6. REMERON [Suspect]
     Indication: POST-TRAUMATIC STRESS DISORDER
     Dates: start: 20060801

REACTIONS (4)
  - ABNORMAL DREAMS [None]
  - DEPRESSION [None]
  - DRUG INTERACTION [None]
  - NIGHTMARE [None]
